FAERS Safety Report 6440028-3 (Version None)
Quarter: 2009Q4

REPORT INFORMATION
  Report Type: 
  Country: None (occurrence: None)
  Receive Date: 20091113
  Receipt Date: 20091106
  Transmission Date: 20100525
  Serious: Yes (Other)
  Sender: FDA-Public Use
  Company Number: US-BAXTER-2009BH017101

PATIENT
  Age: 58 Year
  Sex: Female

DRUGS (2)
  1. NAFCILLIN SODIUM [Suspect]
     Indication: PSOAS ABSCESS
     Route: 042
  2. RIFAMPIN [Concomitant]
     Indication: PSOAS ABSCESS
     Route: 048

REACTIONS (1)
  - HYPOKALAEMIA [None]
